FAERS Safety Report 5615665-6 (Version None)
Quarter: 2008Q1

REPORT INFORMATION
  Report Type: 
  Country: None (occurrence: None)
  Receive Date: 20080206
  Receipt Date: 20080128
  Transmission Date: 20080703
  Serious: Yes (Hospitalization, Other)
  Sender: FDA-Public Use
  Company Number: US-MERCK-0710USA04386

PATIENT
  Age: 70 Year
  Sex: Male

DRUGS (2)
  1. JANUMET [Suspect]
     Indication: DIABETES MELLITUS
     Route: 048
     Dates: start: 20070101
  2. JANUVIA [Concomitant]
     Route: 048

REACTIONS (3)
  - INTESTINAL OBSTRUCTION [None]
  - RASH MACULAR [None]
  - STEVENS-JOHNSON SYNDROME [None]
